FAERS Safety Report 12780008 (Version 1)
Quarter: 2016Q3

REPORT INFORMATION
  Report Type: Spontaneous
  Country: US (occurrence: US)
  Receive Date: 20160925
  Receipt Date: 20160925
  Transmission Date: 20161109
  Serious: Yes (Other)
  Sender: FDA-Public Use
  Company Number: None

PATIENT
  Age: 14 Year
  Sex: Female
  Weight: 36 kg

DRUGS (2)
  1. SINGULAIR [Suspect]
     Active Substance: MONTELUKAST SODIUM
     Indication: COUGH
     Dates: start: 20100601, end: 20110601
  2. SINGULAIR [Suspect]
     Active Substance: MONTELUKAST SODIUM
     Indication: MULTIPLE ALLERGIES
     Dates: start: 20100601, end: 20110601

REACTIONS (3)
  - Mental disorder [None]
  - Depression [None]
  - Product substitution issue [None]

NARRATIVE: CASE EVENT DATE: 20110901
